FAERS Safety Report 6614187-3 (Version None)
Quarter: 2010Q1

REPORT INFORMATION
  Report Type: 
  Country: None (occurrence: None)
  Receive Date: 20100304
  Receipt Date: 20100224
  Transmission Date: 20100710
  Serious: Yes (Hospitalization, Other)
  Sender: FDA-Public Use
  Company Number: US-PFIZER INC-2010024774

PATIENT
  Sex: Female
  Weight: 72 kg

DRUGS (1)
  1. BEXTRA [Suspect]
     Dosage: 10 MG, 1X/DAY
     Dates: start: 20041001, end: 20050201

REACTIONS (1)
  - ISCHAEMIC STROKE [None]
